FAERS Safety Report 10456155 (Version 1)
Quarter: 2014Q3

REPORT INFORMATION
  Report Type: Spontaneous
  Country: US (occurrence: None)
  Receive Date: 20140915
  Receipt Date: 20140915
  Transmission Date: 20150326
  Serious: No
  Sender: FDA-Public Use
  Company Number: None

PATIENT
  Age: 72 Year
  Sex: Male
  Weight: 95.26 kg

DRUGS (1)
  1. LIALDA [Suspect]
     Active Substance: MESALAMINE
     Indication: COLITIS
     Dosage: 4 PILLS?ONCE DAILY?TAKEN BY MOUTH
     Route: 048
     Dates: start: 20140813, end: 20140903

REACTIONS (7)
  - Throat tightness [None]
  - Wheezing [None]
  - Dyspnoea [None]
  - Rhinorrhoea [None]
  - Fatigue [None]
  - Cough [None]
  - Chronic obstructive pulmonary disease [None]

NARRATIVE: CASE EVENT DATE: 20140813
